FAERS Safety Report 23321974 (Version 1)
Quarter: 2023Q4

REPORT INFORMATION
  Report Type: Spontaneous
  Country: US (occurrence: None)
  Receive Date: 20231220
  Receipt Date: 20231220
  Transmission Date: 20240110
  Serious: Yes (Other)
  Sender: FDA-Public Use
  Company Number: None

PATIENT
  Age: 69 Year
  Sex: Male

DRUGS (8)
  1. COSENTYX [Suspect]
     Active Substance: SECUKINUMAB
     Indication: Psoriatic arthropathy
     Dosage: FREQUENCY : MONTHLY;?
     Route: 058
     Dates: start: 20230628
  2. SILVER NITRATE [Concomitant]
  3. SULFAMETHOXAZOLE\TRIMETHOPRIM [Concomitant]
     Active Substance: SULFAMETHOXAZOLE\TRIMETHOPRIM
  4. UNSPECIFIED INGREDIENT [Concomitant]
     Active Substance: UNSPECIFIED INGREDIENT
  5. ORGANIC [Concomitant]
  6. SOYBEAN-CONTAINING DRUG PRODUCTS [Concomitant]
  7. SILVER [Concomitant]
     Active Substance: SILVER
  8. SULFAT ANTIBIOTICS [Concomitant]
     Dates: start: 20230628

REACTIONS (2)
  - Herpes zoster [None]
  - Therapy cessation [None]

NARRATIVE: CASE EVENT DATE: 20231201
